FAERS Safety Report 8345298 (Version 2)
Quarter: 2013Q3

REPORT INFORMATION
  Report Type: Spontaneous
  Country: US (occurrence: US)
  Receive Date: 20120120
  Receipt Date: 20130912
  Transmission Date: 20140515
  Serious: Yes (Other)
  Sender: FDA-Public Use
  Company Number: US-JNJFOC-20111203840

PATIENT
  Age: 29 Year
  Sex: Female

DRUGS (15)
  1. TOPAMAX [Suspect]
     Indication: ANXIETY
     Route: 048
     Dates: start: 200805, end: 200905
  2. TOPAMAX [Suspect]
     Indication: DEPRESSION
     Route: 048
     Dates: start: 200805, end: 200905
  3. TOPAMAX [Suspect]
     Indication: BIPOLAR DISORDER
     Route: 048
     Dates: start: 200805, end: 200905
  4. EFFEXOR [Suspect]
     Indication: DEPRESSION
     Route: 065
  5. PAXIL [Suspect]
     Indication: DEPRESSION
     Route: 065
  6. SEROQUEL [Suspect]
     Indication: DEPRESSION
     Route: 065
  7. GABAPENTIN [Suspect]
     Indication: ANXIETY
     Route: 065
  8. GABAPENTIN [Suspect]
     Indication: DEPRESSION
     Route: 065
  9. XANAX [Suspect]
     Indication: ANXIETY
     Route: 065
  10. TRAZODONE [Suspect]
     Indication: INSOMNIA
     Route: 065
  11. AMBIEN [Suspect]
     Indication: PRODUCT USED FOR UNKNOWN INDICATION
     Route: 048
  12. OMEPRAZOLE [Suspect]
     Indication: PRODUCT USED FOR UNKNOWN INDICATION
     Route: 048
  13. NEXIUM [Suspect]
     Indication: PRODUCT USED FOR UNKNOWN INDICATION
     Route: 065
  14. EFFEXOR XR [Suspect]
     Indication: PRODUCT USED FOR UNKNOWN INDICATION
     Route: 048
  15. PRENATAL VITAMINS [Concomitant]
     Route: 065

REACTIONS (3)
  - Premature labour [Recovered/Resolved]
  - Exposure during pregnancy [Recovered/Resolved]
  - Anxiety [Unknown]
